FAERS Safety Report 4900088-5 (Version None)
Quarter: 2006Q1

REPORT INFORMATION
  Report Type: 
  Country: None (occurrence: None)
  Receive Date: 20060201
  Receipt Date: 20060112
  Transmission Date: 20060701
  Serious: Yes (Hospitalization)
  Sender: FDA-Public Use
  Company Number: US200601002872

PATIENT
  Age: 43 Year
  Sex: Male
  Weight: 98.9 kg

DRUGS (8)
  1. ZYPREXA [Suspect]
  2. NEURONTIN [Concomitant]
  3. ATIVAN [Concomitant]
  4. THIAMINE HYDROCHLORIDE (THIAMINE HYDROCHLORIDE WITH VITAMINS-MINERALS) [Concomitant]
  5. PREVACID [Concomitant]
  6. FOLIC ACID (FOLIC ACID WITH VITAMINS-MINERALS UNKNOWN FORMULATION) [Concomitant]
  7. LACTULOSE [Concomitant]
  8. LEXAPRO /USA/ (ESCITALOPRAM) [Concomitant]

REACTIONS (10)
  - AMMONIA INCREASED [None]
  - BACK PAIN [None]
  - BLOOD ALCOHOL INCREASED [None]
  - BONE PAIN [None]
  - FALL [None]
  - HEPATIC ENCEPHALOPATHY [None]
  - INCOHERENT [None]
  - PANCREATITIS ACUTE [None]
  - POISONING [None]
  - THERAPEUTIC AGENT TOXICITY [None]
